FAERS Safety Report 21223095 (Version 10)
Quarter: 2023Q4

REPORT INFORMATION
  Report Type: Spontaneous
  Country: US (occurrence: US)
  Receive Date: 20220817
  Receipt Date: 20231213
  Transmission Date: 20240110
  Serious: Yes (Other)
  Sender: FDA-Public Use
  Company Number: US-PFIZER INC-202201033521

PATIENT
  Age: 67 Year
  Sex: Female
  Weight: 45.36 kg

DRUGS (2)
  1. ESTRING [Suspect]
     Active Substance: ESTRADIOL
     Indication: Menopause
     Dosage: UNK, EVERY 3 MONTHS (WEARS RING FOR 90 DAYS AND THEN CHANGES IT)
  2. ESTRING [Suspect]
     Active Substance: ESTRADIOL
     Indication: Atrophic vulvovaginitis

REACTIONS (15)
  - Vulvovaginal mycotic infection [Not Recovered/Not Resolved]
  - Vulvovaginal pruritus [Not Recovered/Not Resolved]
  - Haemorrhage [Recovered/Resolved]
  - Autoimmune thyroiditis [Recovered/Resolved]
  - Nephrocalcinosis [Recovered/Resolved]
  - Localised infection [Recovered/Resolved]
  - COVID-19 [Recovered/Resolved]
  - Osteoporosis [Recovered/Resolved]
  - Malabsorption [Recovered/Resolved]
  - Blood calcium increased [Recovered/Resolved]
  - Blood parathyroid hormone increased [Recovered/Resolved]
  - Hypoaesthesia [Not Recovered/Not Resolved]
  - Stress [Recovered/Resolved]
  - Headache [Recovered/Resolved]
  - Malnutrition [Unknown]

NARRATIVE: CASE EVENT DATE: 20200101
